FAERS Safety Report 18652638 (Version 1)
Quarter: 2020Q4

REPORT INFORMATION
  Report Type: Spontaneous
  Country: US (occurrence: US)
  Receive Date: 20201222
  Receipt Date: 20201222
  Transmission Date: 20210114
  Serious: Yes (Hospitalization, Other)
  Sender: FDA-Public Use
  Company Number: US-PURDUE-USA-2020-0192006

PATIENT
  Sex: Male

DRUGS (3)
  1. OXYCODONE HCL TABLETS (RHODES 91-490) [Suspect]
     Active Substance: OXYCODONE HYDROCHLORIDE
     Indication: PRODUCT USED FOR UNKNOWN INDICATION
     Dosage: UNK
     Route: 048
  2. COCAINE [Concomitant]
     Active Substance: COCAINE
     Indication: PRODUCT USED FOR UNKNOWN INDICATION
     Route: 065
  3. PROZAC [Concomitant]
     Active Substance: FLUOXETINE HYDROCHLORIDE
     Indication: PRODUCT USED FOR UNKNOWN INDICATION
     Dosage: 20 MG, UNK
     Route: 065

REACTIONS (11)
  - Hypoglycaemia [Recovered/Resolved]
  - Attention deficit hyperactivity disorder [Unknown]
  - Unevaluable event [Unknown]
  - Learning disability [Unknown]
  - Developmental delay [Unknown]
  - Mental disorder [Unknown]
  - Fungal infection [Unknown]
  - Jaundice [Unknown]
  - Hyperbilirubinaemia [Recovering/Resolving]
  - Foetal exposure during pregnancy [Unknown]
  - Behaviour disorder [Unknown]
